FAERS Safety Report 5126204-0 (Version None)
Quarter: 2006Q3

REPORT INFORMATION
  Report Type: 
  Country: None (occurrence: None)
  Receive Date: 20060824
  Receipt Date: 20060428
  Transmission Date: 20061208
  Serious: Yes (Hospitalization)
  Sender: FDA-Public Use
  Company Number: WAES 0605USA00115

PATIENT
  Sex: Male

DRUGS (4)
  1. VYTORIN [Suspect]
     Indication: BLOOD CHOLESTEROL
     Dosage: 10-20MG /DAILY/PO
     Route: 048
     Dates: start: 20051130
  2. CELEBREX [Concomitant]
  3. LASIX [Concomitant]
  4. LOPRESSOR [Concomitant]

REACTIONS (1)
  - RHABDOMYOLYSIS [None]
